FAERS Safety Report 6195321-9 (Version None)
Quarter: 2009Q2

REPORT INFORMATION
  Report Type: 
  Country: None (occurrence: None)
  Receive Date: 20090515
  Receipt Date: 20090512
  Transmission Date: 20091009
  Serious: Yes (Other)
  Sender: FDA-Public Use
  Company Number: PACLITAXEL-APR-16 (09)

PATIENT
  Age: 49 Year
  Sex: Female

DRUGS (1)
  1. PACLITAXEL [Suspect]
     Indication: ADENOCARCINOMA

REACTIONS (6)
  - ERYTHEMA [None]
  - MUSCULOSKELETAL PAIN [None]
  - MYALGIA [None]
  - NORMOCHROMIC NORMOCYTIC ANAEMIA [None]
  - PLATELET COUNT DECREASED [None]
  - PLEURITIC PAIN [None]
